FAERS Safety Report 25932900 (Version 1)
Quarter: 2025Q4

REPORT INFORMATION
  Report Type: Spontaneous
  Country: EU (occurrence: EU)
  Receive Date: 20251017
  Receipt Date: 20251017
  Transmission Date: 20260117
  Serious: Yes (Other)
  Sender: ALEXION PHARMACEUTICALS
  Company Number: EU-AstraZeneca-CH-00965047A

PATIENT
  Age: 56 Year
  Sex: Male
  Weight: 98 kg

DRUGS (5)
  1. XIGDUO XR [Suspect]
     Active Substance: DAPAGLIFLOZIN PROPANEDIOL\METFORMIN HYDROCHLORIDE
     Dosage: UNK
     Route: 065
  2. RILMENIDINE [Concomitant]
     Active Substance: RILMENIDINE
  3. ALLOPURINOL [Concomitant]
     Active Substance: ALLOPURINOL
  4. ROSUVASTATIN [Concomitant]
     Active Substance: ROSUVASTATIN
  5. METFORMIN [Concomitant]
     Active Substance: METFORMIN HYDROCHLORIDE

REACTIONS (5)
  - Blood glucose fluctuation [Unknown]
  - Glycosylated haemoglobin [Unknown]
  - Blood creatinine abnormal [Unknown]
  - Urine albumin/creatinine ratio abnormal [Unknown]
  - Glomerular filtration rate abnormal [Unknown]
